FAERS Safety Report 6376656-3 (Version None)
Quarter: 2009Q3

REPORT INFORMATION
  Report Type: 
  Country: None (occurrence: None)
  Receive Date: 20090925
  Receipt Date: 20090921
  Transmission Date: 20100115
  Serious: Yes (Other)
  Sender: FDA-Public Use
  Company Number: GB-ROCHE-646918

PATIENT
  Age: 42 Year
  Sex: Male

DRUGS (3)
  1. XELODA [Suspect]
     Indication: RECTAL CANCER
     Route: 048
     Dates: start: 20090526, end: 20090629
  2. CHEMOTHERAPY [Suspect]
     Indication: RECTAL CANCER
     Route: 065
  3. CO-DYDRAMOL [Concomitant]
     Indication: PAIN
     Dosage: FREQUENCY PRN (AS NEEDED) ONE TO TWO TABLETS
     Route: 048
     Dates: start: 20090610

REACTIONS (2)
  - PENILE EXFOLIATION [None]
  - PENILE INFECTION [None]
